FAERS Safety Report 18540673 (Version 1)
Quarter: 2020Q4

REPORT INFORMATION
  Report Type: Spontaneous
  Country: US (occurrence: US)
  Receive Date: 20201124
  Receipt Date: 20201124
  Transmission Date: 20210114
  Serious: Yes (Hospitalization)
  Sender: FDA-Public Use
  Company Number: None

PATIENT
  Age: 74 Year
  Sex: Male
  Weight: 113 kg

DRUGS (13)
  1. ELIQUIS [Concomitant]
     Active Substance: APIXABAN
     Dates: start: 20180129
  2. ECOTRIN [Concomitant]
     Active Substance: ASPIRIN
     Dates: start: 20180427
  3. CLINDAMYCIN PHOS-BENZOYL PEROX GEL [Concomitant]
     Dates: start: 20200930
  4. LEVOTHYROXINE. [Concomitant]
     Active Substance: LEVOTHYROXINE
     Dates: start: 20171201
  5. CHOLECALCIFEROL [Concomitant]
     Active Substance: CHOLECALCIFEROL
     Dates: start: 20180427
  6. CETIRIZINE [Concomitant]
     Active Substance: CETIRIZINE HYDROCHLORIDE
     Dates: start: 20180427
  7. EZETIMIBE. [Concomitant]
     Active Substance: EZETIMIBE
     Dates: start: 20180310
  8. ESOMEPRAZOLE. [Concomitant]
     Active Substance: ESOMEPRAZOLE MAGNESIUM
     Dates: start: 20180427
  9. IPRATROPIUM 0.03 % NASAL SPRAY [Concomitant]
     Dates: start: 20180917
  10. NADOLOL. [Concomitant]
     Active Substance: NADOLOL
     Dates: start: 20190711
  11. BAMLANIVIMAB. [Suspect]
     Active Substance: BAMLANIVIMAB
     Indication: COVID-19
     Dosage: ?          OTHER FREQUENCY:ONCE;?
     Route: 041
     Dates: start: 20201123, end: 20201123
  12. ALPRAZOLAM. [Concomitant]
     Active Substance: ALPRAZOLAM
     Dates: start: 20180427
  13. QUINAPRIL. [Concomitant]
     Active Substance: QUINAPRIL
     Dates: start: 20190821

REACTIONS (4)
  - Myalgia [None]
  - Pyrexia [None]
  - Chills [None]
  - Asthenia [None]

NARRATIVE: CASE EVENT DATE: 20201124
